FAERS Safety Report 7623336-X (Version None)
Quarter: 2011Q3

REPORT INFORMATION
  Report Type: 
  Country: None (occurrence: None)
  Receive Date: 20110720
  Receipt Date: 20110708
  Transmission Date: 20111222
  Serious: Yes (Other)
  Sender: FDA-Public Use
  Company Number: DE-JNJFOC-20110505921

PATIENT
  Sex: Male
  Weight: 87 kg

DRUGS (1)
  1. NICOTINE [Suspect]
     Indication: SMOKING CESSATION THERAPY
     Dosage: ONE PIECE TWICE
     Route: 048
     Dates: start: 20110510, end: 20110511

REACTIONS (3)
  - OROPHARYNGEAL BLISTERING [None]
  - ORAL DISCOMFORT [None]
  - DYSPHAGIA [None]
